FAERS Safety Report 10265337 (Version 1)
Quarter: 2014Q2

REPORT INFORMATION
  Report Type: Spontaneous
  Country: US (occurrence: US)
  Receive Date: 20140627
  Receipt Date: 20140627
  Transmission Date: 20141212
  Serious: No
  Sender: FDA-Public Use
  Company Number: US-009507513-1406USA009563

PATIENT
  Age: 77 Year
  Sex: Female

DRUGS (1)
  1. SINGULAIR [Suspect]
     Indication: THROAT TIGHTNESS
     Dosage: 10 MG/ONCE A DAY (LESS THAT ONE MONTH)
     Route: 048
     Dates: start: 201312

REACTIONS (2)
  - Renal haemorrhage [Recovered/Resolved]
  - Pharyngeal oedema [Unknown]
